FAERS Safety Report 9931033 (Version 2)
Quarter: 2014Q1

REPORT INFORMATION
  Report Type: Spontaneous
  Country: DE (occurrence: DE)
  Receive Date: 20140227
  Receipt Date: 20140313
  Transmission Date: 20141002
  Serious: Yes (Other)
  Sender: FDA-Public Use
  Company Number: PHHY2014DE022175

PATIENT
  Sex: Male
  Weight: 90 kg

DRUGS (2)
  1. ULTIBRO BREEZHALER [Suspect]
     Indication: CHRONIC OBSTRUCTIVE PULMONARY DISEASE
     Dosage: 1 DF, QD
     Dates: start: 20140214
  2. PANTOPRAZOL [Concomitant]

REACTIONS (5)
  - Blood pressure fluctuation [Unknown]
  - Oxygen saturation abnormal [Not Recovered/Not Resolved]
  - Deafness [Unknown]
  - Oedema peripheral [Unknown]
  - Chest pain [Unknown]
